FAERS Safety Report 23424145 (Version 2)
Quarter: 2024Q1

REPORT INFORMATION
  Report Type: Report from Study
  Country: US (occurrence: US)
  Receive Date: 20240120
  Receipt Date: 20240219
  Transmission Date: 20240410
  Serious: Yes (Other)
  Sender: FDA-Public Use
  Company Number: US-TEVA-VS-3135550

PATIENT

DRUGS (4)
  1. ETHAMBUTOL [Suspect]
     Active Substance: ETHAMBUTOL HYDROCHLORIDE
     Indication: Tuberculosis
     Route: 065
  2. RIFAMPIN [Suspect]
     Active Substance: RIFAMPIN
     Indication: Tuberculosis
     Route: 065
  3. PYRAZINAMIDE [Suspect]
     Active Substance: PYRAZINAMIDE
     Indication: Tuberculosis
     Route: 065
  4. ISONIAZID [Suspect]
     Active Substance: ISONIAZID
     Indication: Tuberculosis
     Route: 065

REACTIONS (1)
  - Drug-induced liver injury [Recovering/Resolving]
